FAERS Safety Report 6746949-6 (Version None)
Quarter: 2010Q2

REPORT INFORMATION
  Report Type: 
  Country: None (occurrence: None)
  Receive Date: 20100528
  Receipt Date: 20090918
  Transmission Date: 20101027
  Serious: No
  Sender: FDA-Public Use
  Company Number: US-ASTRAZENECA-2009SE22694

PATIENT
  Sex: Male

DRUGS (1)
  1. PRILOSEC OTC [Suspect]
     Dosage: 1 TABLET, 1 /DAY
     Route: 048

REACTIONS (4)
  - CHEST PAIN [None]
  - DIZZINESS [None]
  - INCORRECT DRUG ADMINISTRATION DURATION [None]
  - PAIN IN EXTREMITY [None]
